FAERS Safety Report 23026813 (Version 1)
Quarter: 2023Q4

REPORT INFORMATION
  Report Type: Spontaneous
  Country: US (occurrence: US)
  Receive Date: 20231004
  Receipt Date: 20231004
  Transmission Date: 20240109
  Serious: No
  Sender: FDA-Public Use
  Company Number: US-SA-SAC20230928001114

PATIENT
  Sex: Male

DRUGS (10)
  1. DUPIXENT [Suspect]
     Active Substance: DUPILUMAB
     Indication: Multiple sclerosis
     Dosage: 300 MG, QOW
     Route: 058
     Dates: start: 20230616
  2. AMANTADINE [Concomitant]
     Active Substance: AMANTADINE
  3. AVONEX [Concomitant]
     Active Substance: INTERFERON BETA-1A
  4. FLAXSEED [Concomitant]
     Active Substance: FLAX SEED
  5. FLUOXETINE [Concomitant]
     Active Substance: FLUOXETINE HYDROCHLORIDE
  6. MECLIZINE [Concomitant]
     Active Substance: MECLIZINE HYDROCHLORIDE
  7. MODAFINIL [Concomitant]
     Active Substance: MODAFINIL
  8. TYLENOL [Concomitant]
     Active Substance: ACETAMINOPHEN
  9. COENZYME Q10 [Concomitant]
     Active Substance: DIETARY SUPPLEMENT\UBIDECARENONE
  10. FISH OIL\OMEGA-3 FATTY ACIDS [Concomitant]
     Active Substance: FISH OIL\OMEGA-3 FATTY ACIDS

REACTIONS (7)
  - Discomfort [Unknown]
  - Infection [Unknown]
  - Condition aggravated [Unknown]
  - Sleep disorder [Unknown]
  - Eye irritation [Unknown]
  - Rash [Unknown]
  - Product use in unapproved indication [Unknown]
